FAERS Safety Report 9518363 (Version 1)
Quarter: 2013Q1

REPORT INFORMATION
  Report Type: Spontaneous
  Country: US (occurrence: None)
  Receive Date: 20130305
  Receipt Date: 20130305
  Transmission Date: 20140127
  Serious: Yes (Other)
  Sender: FDA-Public Use
  Company Number: 163-21880-12121375

PATIENT
  Age: 84 Year
  Sex: Female
  Weight: 52.98 kg

DRUGS (9)
  1. REVLIMID [Suspect]
     Indication: MYELODYSPLASTIC SYNDROME
     Route: 048
     Dates: start: 20090116
  2. ZYPREXA (OLANZAPINE) [Concomitant]
  3. BONIVA (IBANDRONATE SODIUM) [Concomitant]
  4. ZOSTAVAX (VARICELLA VIRUS VACCINE, LIVE) [Concomitant]
  5. PREDNISONE (PREDNISONE) [Concomitant]
  6. PATADAY (OLOPATADINE HYDROCHLORIDE) [Concomitant]
  7. SERTRALINE (SERTRALINE) [Concomitant]
  8. ACTONEL (RISEDRONATE SODIUM) [Concomitant]
  9. NITROFURANTOIN [Concomitant]

REACTIONS (2)
  - Full blood count decreased [None]
  - Malaise [None]
